FAERS Safety Report 4693979-4 (Version None)
Quarter: 2005Q2

REPORT INFORMATION
  Report Type: 
  Country: None (occurrence: None)
  Receive Date: 20050617
  Receipt Date: 20050309
  Transmission Date: 20051028
  Serious: Yes (Death)
  Sender: FDA-Public Use
  Company Number: US-MERCK-0503USA02022

PATIENT
  Age: 57 Year
  Sex: Female
  Weight: 127 kg

DRUGS (10)
  1. VIOXX [Suspect]
     Indication: OSTEOARTHRITIS
     Route: 048
     Dates: start: 20021101, end: 20030201
  2. PREMPRO [Concomitant]
     Route: 065
     Dates: start: 20000101, end: 20030213
  3. HYDROCHLOROTHIAZIDE [Concomitant]
     Route: 065
  4. TRICOR [Concomitant]
     Route: 065
  5. CARDIZEM [Concomitant]
     Route: 065
     Dates: end: 20030213
  6. SYNTHROID [Concomitant]
     Route: 065
  7. TOPROL-XL [Concomitant]
     Route: 065
     Dates: end: 20030213
  8. VICODIN [Concomitant]
     Route: 065
  9. ALBUTEROL [Concomitant]
     Route: 065
  10. TUSSIONEX (CHLORPHENIRAMINE POLISTIREX (+) HYDROCODONE POLISTIREX) [Concomitant]
     Route: 065

REACTIONS (4)
  - AORTIC DISSECTION [None]
  - CARDIAC TAMPONADE [None]
  - MYOCARDIAL INFARCTION [None]
  - PERICARDIAL HAEMORRHAGE [None]
